FAERS Safety Report 12824047 (Version 1)
Quarter: 2016Q4

REPORT INFORMATION
  Report Type: Spontaneous
  Country: US (occurrence: US)
  Receive Date: 20161007
  Receipt Date: 20161007
  Transmission Date: 20170207
  Serious: Yes (Hospitalization)
  Sender: FDA-Public Use
  Company Number: None

PATIENT
  Age: 36 Year
  Sex: Female

DRUGS (3)
  1. CENTRUM [Concomitant]
     Active Substance: VITAMINS
  2. DEPO-PROVERA [Suspect]
     Active Substance: MEDROXYPROGESTERONE ACETATE
     Indication: CONTRACEPTION
     Dosage: IM EVERY 3 MONTHS
     Route: 030
     Dates: start: 20160718
  3. NOVOLOG LANTUS [Concomitant]

REACTIONS (5)
  - Injection site pruritus [None]
  - Injection site haematoma [None]
  - Injection site erythema [None]
  - Injection site pain [None]
  - Injection site mass [None]

NARRATIVE: CASE EVENT DATE: 20160718
